FAERS Safety Report 18895476 (Version 1)
Quarter: 2021Q1

REPORT INFORMATION
  Report Type: Report from Study
  Country: US (occurrence: US)
  Receive Date: 20210215
  Receipt Date: 20210215
  Transmission Date: 20210420
  Serious: No
  Sender: FDA-Public Use
  Company Number: NVSC2021US035327

PATIENT
  Age: 53 Year
  Sex: Female
  Weight: 71.2 kg

DRUGS (1)
  1. MAYZENT [Suspect]
     Active Substance: SIPONIMOD
     Indication: PRODUCT USED FOR UNKNOWN INDICATION
     Dosage: QD (ORAL VIA MOUTH)
     Route: 048
     Dates: start: 2020

REACTIONS (1)
  - Migraine [Unknown]
